FAERS Safety Report 17448333 (Version 2)
Quarter: 2020Q1

REPORT INFORMATION
  Report Type: Report from Study
  Country: None (occurrence: MX)
  Receive Date: 20200223
  Receipt Date: 20200316
  Transmission Date: 20200409
  Serious: No
  Sender: FDA-Public Use
  Company Number: MX-ABBVIE-20K-107-3289397-00

PATIENT
  Age: 59 Year
  Sex: Female
  Weight: 66 kg

DRUGS (6)
  1. PREGABALIN. [Concomitant]
     Active Substance: PREGABALIN
     Indication: PAIN
     Route: 048
  2. VALMETROL [Concomitant]
     Indication: VITAMIN D
     Route: 048
  3. DULOXETINE. [Concomitant]
     Active Substance: DULOXETINE
     Indication: PAIN
     Route: 048
  4. HUMIRA [Suspect]
     Active Substance: ADALIMUMAB
     Indication: ANKYLOSING SPONDYLITIS
     Route: 058
     Dates: start: 2016, end: 201805
  5. CELEBREX [Concomitant]
     Active Substance: CELECOXIB
     Indication: PAIN
     Route: 048
  6. HUMIRA [Suspect]
     Active Substance: ADALIMUMAB
     Route: 058
     Dates: start: 20200220

REACTIONS (3)
  - Fatigue [Recovered/Resolved]
  - Spinal pain [Unknown]
  - Lung disorder [Unknown]

NARRATIVE: CASE EVENT DATE: 201911
